FAERS Safety Report 4450893-7 (Version None)
Quarter: 2004Q3

REPORT INFORMATION
  Report Type: 
  Country: None (occurrence: None)
  Receive Date: 20040916
  Receipt Date: 20020102
  Transmission Date: 20050211
  Serious: Yes (Other)
  Sender: FDA-Public Use
  Company Number: US-BRISTOL-MYERS SQUIBB COMPANY-11717105

PATIENT
  Age: 25 Year
  Sex: Female

DRUGS (7)
  1. STADOL [Suspect]
     Route: 045
     Dates: start: 19940101, end: 20010101
  2. STADOL [Suspect]
     Route: 030
     Dates: start: 19940101, end: 20010101
  3. PROPOXYPHENE NAPSYLATE + ASA [Concomitant]
  4. CHLORZOXAZONE [Concomitant]
  5. DOXYCYCLINE [Concomitant]
  6. HYDROCODONE + ACETAMINOPHEN [Concomitant]
  7. PHENERGAN HCL [Concomitant]

REACTIONS (2)
  - DEPENDENCE [None]
  - DRUG WITHDRAWAL SYNDROME [None]
